FAERS Safety Report 25892354 (Version 1)
Quarter: 2025Q4

REPORT INFORMATION
  Report Type: Spontaneous
  Country: GB (occurrence: GB)
  Receive Date: 20251007
  Receipt Date: 20251007
  Transmission Date: 20260117
  Serious: Yes (Other)
  Sender: SANOFI AVENTIS
  Company Number: GB-MHRA-TPP7244187C9815643YC1758890137743

PATIENT
  Age: 66 Year
  Sex: Male
  Weight: 93 kg

DRUGS (7)
  1. TAMSULOSIN HYDROCHLORIDE [Suspect]
     Active Substance: TAMSULOSIN HYDROCHLORIDE
     Indication: Ill-defined disorder
     Dosage: 400 UG, QD
     Route: 048
     Dates: start: 20250911
  2. NITROFURANTOIN [Concomitant]
     Active Substance: NITROFURANTOIN
     Indication: Ill-defined disorder
     Dosage: 1 DF, BID (TAKE ONE CAPSULE TWICE DAILY FOR 7 DAYS, TO TRE...)
     Route: 065
     Dates: start: 20250819, end: 20250826
  3. ESOMEPRAZOLE [Concomitant]
     Active Substance: ESOMEPRAZOLE
     Indication: Ill-defined disorder
     Dosage: 1 DF, QD (TAKE ONE DAILY)
     Route: 065
     Dates: start: 20250407
  4. Gaviscon advanced [Concomitant]
     Indication: Ill-defined disorder
     Dosage: UNK, Q6H (5ML - 10ML 4 TIMES/DAY)
     Route: 065
     Dates: start: 20250407
  5. TRAMADOL [Concomitant]
     Active Substance: TRAMADOL
     Indication: Ill-defined disorder
     Dosage: ONE DAILY OR TWO
     Route: 065
     Dates: start: 20250407
  6. CLOPIDOGREL [Concomitant]
     Active Substance: CLOPIDOGREL BISULFATE
     Indication: Ill-defined disorder
     Dosage: 1 DF, QD (TAKE ONE ONCE DAILY)
     Route: 065
     Dates: start: 20250915
  7. NICOTINE [Concomitant]
     Active Substance: NICOTINE
     Indication: Ill-defined disorder
     Dosage: UNK, QD (APPLY DAILY)
     Route: 065
     Dates: start: 20250915

REACTIONS (1)
  - Spontaneous penile erection [Recovered/Resolved]

NARRATIVE: CASE EVENT DATE: 20250911
